FAERS Safety Report 6824657-0 (Version None)
Quarter: 2010Q3

REPORT INFORMATION
  Report Type: 
  Country: None (occurrence: None)
  Receive Date: 20100708
  Receipt Date: 20061112
  Transmission Date: 20110219
  Serious: No
  Sender: FDA-Public Use
  Company Number: US-PFIZER INC-2006140285

PATIENT
  Sex: Female
  Weight: 57.2 kg

DRUGS (4)
  1. CHANTIX [Suspect]
     Indication: SMOKING CESSATION THERAPY
     Dates: start: 20061104
  2. SERTRALINE HCL [Concomitant]
  3. ALPRAZOLAM [Concomitant]
  4. TRAMADOL [Concomitant]

REACTIONS (1)
  - ABDOMINAL PAIN UPPER [None]
